FAERS Safety Report 5693621-X (Version None)
Quarter: 2008Q2

REPORT INFORMATION
  Report Type: 
  Country: None (occurrence: None)
  Receive Date: 20080328
  Receipt Date: 20071009
  Transmission Date: 20081010
  Serious: Yes (Other)
  Sender: FDA-Public Use
  Company Number: US-WYE-H00669307

PATIENT
  Sex: Female

DRUGS (1)
  1. PROTONIX [Suspect]
     Dosage: 40 MG 1X PER 1 DAY, ORAL
     Route: 048
     Dates: start: 20070901, end: 20070901

REACTIONS (3)
  - INFLUENZA LIKE ILLNESS [None]
  - PAIN [None]
  - RESPIRATORY TRACT CONGESTION [None]
